FAERS Safety Report 10978181 (Version 2)
Quarter: 2015Q2

REPORT INFORMATION
  Report Type: Report from Study
  Country: AU (occurrence: AU)
  Receive Date: 20150402
  Receipt Date: 20150407
  Transmission Date: 20150821
  Serious: Yes (Other)
  Sender: FDA-Public Use
  Company Number: AU-PFIZER INC-2015052163

PATIENT
  Age: 15 Year

DRUGS (1)
  1. CRIZOTINIB [Suspect]
     Active Substance: CRIZOTINIB
     Indication: ANAPLASTIC LARGE-CELL LYMPHOMA
     Dosage: 450 MG, 2X/DAY
     Route: 048
     Dates: start: 201502

REACTIONS (2)
  - Neutropenia [Unknown]
  - Leukopenia [Unknown]
